FAERS Safety Report 21034345 (Version 3)
Quarter: 2022Q3

REPORT INFORMATION
  Report Type: Spontaneous
  Country: US (occurrence: US)
  Receive Date: 20220701
  Receipt Date: 20220721
  Transmission Date: 20221026
  Serious: No
  Sender: FDA-Public Use
  Company Number: US-GSKCCFUS-Case-01413512_AE-81357

PATIENT
  Sex: Male

DRUGS (1)
  1. BREO ELLIPTA [Suspect]
     Active Substance: FLUTICASONE FUROATE\VILANTEROL TRIFENATATE
     Indication: Product used for unknown indication
     Dosage: 2 DF 100/25 MCG (TOOK TWO DOSES IN A ROW)

REACTIONS (3)
  - Drug ineffective [Recovered/Resolved]
  - Extra dose administered [Unknown]
  - Product complaint [Unknown]
